APPROVED DRUG PRODUCT: CLOZAPINE
Active Ingredient: CLOZAPINE
Strength: 100MG
Dosage Form/Route: TABLET, ORALLY DISINTEGRATING;ORAL
Application: A201824 | Product #003 | TE Code: AB
Applicant: MYLAN PHARMACEUTICALS INC
Approved: Sep 15, 2015 | RLD: No | RS: No | Type: RX